FAERS Safety Report 22267355 (Version 1)
Quarter: 2023Q2

REPORT INFORMATION
  Report Type: Spontaneous
  Country: US (occurrence: US)
  Receive Date: 20230428
  Receipt Date: 20230428
  Transmission Date: 20230722
  Serious: No
  Sender: FDA-Public Use
  Company Number: US-PFIZER INC-PV202300074901

PATIENT
  Age: 75 Year
  Sex: Male

DRUGS (2)
  1. RETACRIT [Suspect]
     Active Substance: EPOETIN ALFA-EPBX
     Dosage: 40000 IU/ML (VL 4X1ML)
  2. RETACRIT [Suspect]
     Active Substance: EPOETIN ALFA-EPBX
     Dosage: 10000 IU/ML (VL 10X1ML)

REACTIONS (1)
  - Illness [Unknown]
